FAERS Safety Report 4824125-1 (Version None)
Quarter: 2005Q4

REPORT INFORMATION
  Report Type: 
  Country: None (occurrence: None)
  Receive Date: 20051108
  Receipt Date: 20051020
  Transmission Date: 20060501
  Serious: Yes (Other)
  Sender: FDA-Public Use
  Company Number: USA0510111509

PATIENT
  Age: 51 Year
  Sex: Female

DRUGS (5)
  1. PROZAC [Suspect]
     Indication: DEPRESSION
     Dosage: 80 MG DAY
     Dates: start: 19940101, end: 20040101
  2. XELODA [Concomitant]
  3. OXYCONTIN [Concomitant]
  4. AMBIEN [Concomitant]
  5. ZOFRAN [Concomitant]

REACTIONS (4)
  - BREAST CANCER FEMALE [None]
  - BREAST CANCER METASTATIC [None]
  - DRUG INEFFECTIVE [None]
  - METASTASES TO BONE [None]
